FAERS Safety Report 13367531 (Version 1)
Quarter: 2017Q1

REPORT INFORMATION
  Report Type: Spontaneous
  Country: US (occurrence: US)
  Receive Date: 20170323
  Receipt Date: 20170323
  Transmission Date: 20170429
  Serious: Yes (Hospitalization, Other)
  Sender: FDA-Public Use
  Company Number: None

PATIENT
  Age: 42 Year
  Sex: Male

DRUGS (3)
  1. GUAIFENESIN. [Concomitant]
     Active Substance: GUAIFENESIN
  2. DIPHENHYDRAMINE. [Concomitant]
     Active Substance: DIPHENHYDRAMINE
  3. OLANZAPINE ODT [Suspect]
     Active Substance: OLANZAPINE
     Route: 048

REACTIONS (5)
  - Red blood cell count decreased [None]
  - White blood cell count decreased [None]
  - Lymphocyte count increased [None]
  - Blood disorder [None]
  - Neutropenia [None]

NARRATIVE: CASE EVENT DATE: 20170117
